FAERS Safety Report 18846134 (Version 1)
Quarter: 2021Q1

REPORT INFORMATION
  Report Type: Spontaneous
  Country: US (occurrence: US)
  Receive Date: 20210204
  Receipt Date: 20210204
  Transmission Date: 20210419
  Serious: No
  Sender: FDA-Public Use
  Company Number: US-PFIZER INC-2020423004

PATIENT
  Age: 75 Year
  Sex: Female

DRUGS (2)
  1. IBRANCE [Suspect]
     Active Substance: PALBOCICLIB
     Dosage: 125 MG
     Dates: start: 20200624
  2. IBRANCE [Suspect]
     Active Substance: PALBOCICLIB
     Indication: HEPATIC CIRRHOSIS
     Dosage: 100 MG

REACTIONS (3)
  - Memory impairment [Unknown]
  - Neoplasm recurrence [Unknown]
  - Off label use [Unknown]
